FAERS Safety Report 4510018-6 (Version None)
Quarter: 2004Q4

REPORT INFORMATION
  Report Type: 
  Country: None (occurrence: None)
  Receive Date: 20041119
  Receipt Date: 20041105
  Transmission Date: 20050328
  Serious: Yes (Other)
  Sender: FDA-Public Use
  Company Number: 8008072

PATIENT
  Age: 19 Year
  Sex: Female

DRUGS (3)
  1. KEPPRA [Suspect]
     Dosage: 2000 MG/D
     Dates: start: 20040701, end: 20040101
  2. KEPPRA [Suspect]
     Dosage: 2000 MG/D
     Dates: start: 20040101
  3. TOPIRMATE [Concomitant]

REACTIONS (3)
  - BLOOD CREATINE PHOSPHOKINASE INCREASED [None]
  - CONVULSION [None]
  - TREATMENT NONCOMPLIANCE [None]
